FAERS Safety Report 25969468 (Version 1)
Quarter: 2025Q4

REPORT INFORMATION
  Report Type: Spontaneous
  Country: US (occurrence: None)
  Receive Date: 20251028
  Receipt Date: 20251028
  Transmission Date: 20260118
  Serious: Yes (Hospitalization)
  Sender: FDA-CTU
  Company Number: None

PATIENT
  Sex: Female

DRUGS (4)
  1. BOTOX [Suspect]
     Active Substance: ONABOTULINUMTOXINA
     Indication: Product used for unknown indication
     Dosage: OTHER FREQUENCY : EVERY 3 MONTHS;?
     Route: 030
     Dates: start: 20190912
  2. FLONASE ALGY SPR 50MCG [Concomitant]
  3. KETOROLAC SOL 0.5% [Concomitant]
  4. LOESTRIN FE TAB 1.5/30 [Concomitant]

REACTIONS (2)
  - Product use issue [None]
  - Insurance issue [None]
